FAERS Safety Report 9764766 (Version 1)
Quarter: 2013Q4

REPORT INFORMATION
  Report Type: Spontaneous
  Country: US (occurrence: US)
  Receive Date: 20131217
  Receipt Date: 20131217
  Transmission Date: 20140711
  Serious: No
  Sender: FDA-Public Use
  Company Number: US-BIOGENIDEC-2013BI115834

PATIENT
  Age: 57 Year
  Sex: Female
  Weight: 146 kg

DRUGS (11)
  1. TECFIDERA [Suspect]
     Indication: PRODUCT USED FOR UNKNOWN INDICATION
     Route: 048
  2. CYANOCOBALAMIN [Concomitant]
  3. CALTRATE + D [Concomitant]
  4. SINGULAIR [Concomitant]
  5. ATORVASTATIN [Concomitant]
  6. BUMETANIDE [Concomitant]
  7. BENICAR [Concomitant]
  8. FUROSEMIDE [Concomitant]
  9. K-DUR [Concomitant]
  10. VIT C [Concomitant]
  11. VIT D [Concomitant]

REACTIONS (1)
  - Fatigue [Unknown]
